FAERS Safety Report 7730095-9 (Version None)
Quarter: 2011Q3

REPORT INFORMATION
  Report Type: 
  Country: None (occurrence: None)
  Receive Date: 20110906
  Receipt Date: 20110901
  Transmission Date: 20111222
  Serious: Yes (Hospitalization)
  Sender: FDA-Public Use
  Company Number: FR-PFIZER INC-2011204216

PATIENT
  Age: 60 Year
  Sex: Female

DRUGS (2)
  1. ANAFRANIL [Suspect]
     Dosage: 75 MG, 2X/DAY
     Route: 048
  2. XANAX [Suspect]
     Dosage: 0.25 MG, 3X/DAY
     Route: 048

REACTIONS (7)
  - HYPOCHLORAEMIA [None]
  - INAPPROPRIATE ANTIDIURETIC HORMONE SECRETION [None]
  - HYPOKALAEMIA [None]
  - MANIA [None]
  - SOMNOLENCE [None]
  - HYPONATRAEMIA [None]
  - CHOREOATHETOSIS [None]
